FAERS Safety Report 7146440-1 (Version None)
Quarter: 2010Q4

REPORT INFORMATION
  Report Type: 
  Country: None (occurrence: None)
  Receive Date: 20101208
  Receipt Date: 20101126
  Transmission Date: 20110411
  Serious: Yes (Hospitalization)
  Sender: FDA-Public Use
  Company Number: PHHY2010ES80476

PATIENT
  Age: 70 Year
  Sex: Female

DRUGS (5)
  1. DAFIRO [Suspect]
     Indication: HYPERTENSION
     Dosage: 1 DF/DAY
     Dates: start: 20081113, end: 20101024
  2. INDAPAMIDE [Interacting]
     Indication: HYPERTENSION
     Dosage: 2.5 MG/DAY
     Dates: start: 20080101, end: 20101024
  3. SERTRALINE [Interacting]
     Indication: DEPRESSION
     Dosage: 50 MG/ DAY
     Dates: start: 20080101, end: 20101024
  4. SIMVASTATIN [Concomitant]
     Indication: DYSLIPIDAEMIA
     Dosage: 10MG/DAY
  5. SINTROM [Concomitant]
     Indication: ATRIAL FIBRILLATION
     Dosage: 2.28 MG/ 7 TIMES PER DAY

REACTIONS (4)
  - DRUG INTERACTION [None]
  - HYPOKALAEMIA [None]
  - HYPONATRAEMIA [None]
  - HYPOTENSION [None]
